FAERS Safety Report 21729266 (Version 1)
Quarter: 2022Q4

REPORT INFORMATION
  Report Type: Spontaneous
  Country: CA (occurrence: CA)
  Receive Date: 20221214
  Receipt Date: 20221214
  Transmission Date: 20230112
  Serious: Yes (Other)
  Sender: FDA-Public Use
  Company Number: CA-BAYER-2022A168101

PATIENT
  Age: 50 Year
  Sex: Male

DRUGS (41)
  1. CIPROFLOXACIN [Suspect]
     Active Substance: CIPROFLOXACIN
  2. ENBREL [Suspect]
     Active Substance: ETANERCEPT
  3. METHOTREXATE [Suspect]
     Active Substance: METHOTREXATE
     Dosage: 50 MG, OW
  4. ARAVA [Suspect]
     Active Substance: LEFLUNOMIDE
  5. HUMIRA [Suspect]
     Active Substance: ADALIMUMAB
  6. HYDROXYCHLOROQUINE SULFATE [Suspect]
     Active Substance: HYDROXYCHLOROQUINE SULFATE
  7. GOLIMUMAB [Suspect]
     Active Substance: GOLIMUMAB
  8. ORENCIA [Suspect]
     Active Substance: ABATACEPT
  9. ACITRETIN [Suspect]
     Active Substance: ACITRETIN
  10. CYCLOSPORINE [Suspect]
     Active Substance: CYCLOSPORINE
  11. ERELZI [Suspect]
     Active Substance: ETANERCEPT-SZZS
  12. FOLIC ACID [Suspect]
     Active Substance: FOLIC ACID
  13. STELARA [Suspect]
     Active Substance: USTEKINUMAB
  14. ACTEMRA [Suspect]
     Active Substance: TOCILIZUMAB
     Dosage: 592 MG, OM
  15. XELJANZ [Suspect]
     Active Substance: TOFACITINIB CITRATE
     Dosage: 10 MG
  16. SORIATANE [Suspect]
     Active Substance: ACITRETIN
  17. SULFASALAZINE [Suspect]
     Active Substance: SULFASALAZINE
     Dosage: 2 MG
  18. CIMZIA [Suspect]
     Active Substance: CERTOLIZUMAB PEGOL
  19. LEUCOVORIN [Suspect]
     Active Substance: LEUCOVORIN
  20. ALENDRONATE SODIUM [Suspect]
     Active Substance: ALENDRONATE SODIUM
  21. REMICADE [Suspect]
     Active Substance: INFLIXIMAB
     Dosage: 300 MG
  22. RITUXIMAB [Suspect]
     Active Substance: RITUXIMAB
  23. SIMPONI [Suspect]
     Active Substance: GOLIMUMAB
  24. TOCILIZUMAB [Suspect]
     Active Substance: TOCILIZUMAB
  25. CERTOLIZUMAB PEGOL [Suspect]
     Active Substance: CERTOLIZUMAB PEGOL
  26. CANNABIS SATIVA FLOWERING TOP [Suspect]
     Active Substance: CANNABIS SATIVA FLOWERING TOP
  27. ERGOCALCIFEROL [Suspect]
     Active Substance: ERGOCALCIFEROL
  28. COSENTYX [Suspect]
     Active Substance: SECUKINUMAB
     Dosage: 450 MG, OM
  29. COSENTYX [Suspect]
     Active Substance: SECUKINUMAB
     Dosage: 150 MG
  30. DESOXIMETASONE [Suspect]
     Active Substance: DESOXIMETASONE
  31. DESOXIMETASONE [Concomitant]
     Active Substance: DESOXIMETASONE
  32. INFLIXIMAB [Concomitant]
     Active Substance: INFLIXIMAB
     Dosage: 300 MG
  33. HYDROXYCHLOROQUINE [Concomitant]
     Active Substance: HYDROXYCHLOROQUINE
     Dosage: 400 MG
  34. METFORMIN [Concomitant]
     Active Substance: METFORMIN HYDROCHLORIDE
  35. METFORMIN HYDROCHLORIDE [Concomitant]
     Active Substance: METFORMIN HYDROCHLORIDE
  36. PERINDOPRIL [Concomitant]
     Active Substance: PERINDOPRIL
  37. XELJANZ XR [Concomitant]
     Active Substance: TOFACITINIB CITRATE
     Dosage: 11 MG
  38. CANAGLIFLOZIN [Concomitant]
     Active Substance: CANAGLIFLOZIN
  39. LEFLUNOMIDE [Concomitant]
     Active Substance: LEFLUNOMIDE
     Dosage: 20 MG
  40. PREDNISONE [Concomitant]
     Active Substance: PREDNISONE
  41. APREMILAST [Concomitant]
     Active Substance: APREMILAST

REACTIONS (46)
  - Hepatic steatosis [None]
  - Drug ineffective [None]
  - Diabetes mellitus [None]
  - Hypertension [None]
  - Alanine aminotransferase increased [None]
  - Arthropathy [None]
  - Joint ankylosis [None]
  - Bone erosion [None]
  - Bone cyst [None]
  - Osteolysis [None]
  - Alanine aminotransferase abnormal [None]
  - Anti-cyclic citrullinated peptide antibody positive [None]
  - Arthralgia [None]
  - C-reactive protein abnormal [None]
  - Joint swelling [None]
  - Liver disorder [None]
  - Musculoskeletal stiffness [None]
  - Pain [None]
  - Red blood cell sedimentation rate abnormal [None]
  - Upper respiratory tract infection [None]
  - Therapeutic response decreased [None]
  - Therapeutic product effect decreased [None]
  - C-reactive protein increased [None]
  - Drug hypersensitivity [None]
  - Rheumatoid arthritis [None]
  - Synovitis [None]
  - Off label use [None]
  - Product use issue [None]
  - Hepatic cirrhosis [None]
  - Hepatic fibrosis [None]
  - Psoriatic arthropathy [None]
  - Abdominal discomfort [None]
  - Diarrhoea [None]
  - Drug intolerance [None]
  - Drug-induced liver injury [None]
  - Dyspepsia [None]
  - Gastrointestinal infection [None]
  - Hand deformity [None]
  - Infection [None]
  - Localised infection [None]
  - Nausea [None]
  - Pruritus [None]
  - Skin injury [None]
  - Treatment failure [None]
  - Therapeutic product effect incomplete [None]
  - Transaminases increased [None]
